FAERS Safety Report 5502287-0 (Version None)
Quarter: 2007Q4

REPORT INFORMATION
  Report Type: 
  Country: None (occurrence: None)
  Receive Date: 20071030
  Receipt Date: 20071016
  Transmission Date: 20080405
  Serious: Yes (Other)
  Sender: FDA-Public Use
  Company Number: GB-RANBAXY-2007RR-10779

PATIENT

DRUGS (14)
  1. TAMSULOSIN HCL [Suspect]
     Indication: URINARY TRACT DISORDER
     Dosage: 400 UG, QD
     Route: 048
     Dates: start: 20060808
  2. XENICAL [Suspect]
     Indication: OBESITY
     Dosage: 120 MG, TID
     Route: 048
     Dates: start: 20070613
  3. AMILORIDE HYDROCHLORIDE [Concomitant]
     Dosage: 1 DF, UNK
  4. BISOPROLOL FUMARATE [Concomitant]
     Dosage: 1 DF, UNK
  5. CANDESARTAN CILEXETIL [Concomitant]
     Dosage: 1 DF, UNK
  6. FERROUS SULFATE TAB [Concomitant]
     Dosage: 3 DF, UNK
  7. FUROSEMIDE TABLETS BP 40MG [Concomitant]
     Dosage: 2 DF, UNK
  8. FYBOGEL [Concomitant]
     Dosage: UNK
  9. LACTULOSE [Concomitant]
     Dosage: 20 ML, UNK
  10. LANSOPRAZOLE 30 MG GASTRO-RESISTANT CAPSULES [Concomitant]
     Dosage: 1 DF, UNK
  11. MIXTARD HUMAN 70/30 [Concomitant]
     Indication: DIABETES MELLITUS
     Dosage: 56 IU, UNK
     Route: 058
  12. NITROMIN [Concomitant]
     Dosage: UNK
     Route: 048
  13. SIMVASTATIN 10MG TABLETS [Concomitant]
     Dosage: 1 DF, UNK
  14. WARFARIN SODIUM [Concomitant]
     Indication: ATRIAL FIBRILLATION
     Dosage: 5 MG, UNK
     Route: 048
     Dates: start: 20040615

REACTIONS (3)
  - DIZZINESS [None]
  - HYPOGLYCAEMIA [None]
  - INTERNATIONAL NORMALISED RATIO INCREASED [None]
